FAERS Safety Report 4349390-9 (Version None)
Quarter: 2004Q2

REPORT INFORMATION
  Report Type: 
  Country: None (occurrence: None)
  Receive Date: 20040428
  Receipt Date: 20040216
  Transmission Date: 20050107
  Serious: Yes (Disabling, Other)
  Sender: FDA-Public Use
  Company Number: US-GLAXOSMITHKLINE-A0508692A

PATIENT
  Age: 35 Year
  Sex: Female

DRUGS (2)
  1. WELLBUTRIN XL [Suspect]
     Indication: DEPRESSION
     Dosage: 300MG PER DAY
     Route: 048
     Dates: start: 20040112
  2. NO CONCURRENT MEDICATIONS [Concomitant]

REACTIONS (3)
  - AFFECT LABILITY [None]
  - CRYING [None]
  - DEPRESSED MOOD [None]
